FAERS Safety Report 8567534 (Version 6)
Quarter: 2013Q1

REPORT INFORMATION
  Report Type: Spontaneous
  Country: JP (occurrence: JP)
  Receive Date: 20120517
  Receipt Date: 20130306
  Transmission Date: 20140127
  Serious: Yes (Life-Threatening, Hospitalization, Other)
  Sender: FDA-Public Use
  Company Number: JP-TEVA-338037USA

PATIENT
  Age: 63 Year
  Sex: Male
  Weight: 64 kg

DRUGS (6)
  1. TREANDA [Suspect]
     Indication: MANTLE CELL LYMPHOMA
     Dosage: CYCLE 1
     Route: 042
     Dates: start: 20111013, end: 20120314
  2. RITUXIMAB [Suspect]
     Indication: MANTLE CELL LYMPHOMA
     Route: 042
     Dates: start: 20111012, end: 20120312
  3. ACICLOVIR [Concomitant]
     Indication: HERPES ZOSTER
     Dates: start: 20111114, end: 20120501
  4. CARBOCISTEINE [Concomitant]
     Indication: EMPHYSEMA
     Dates: start: 201010, end: 20120501
  5. TIOTROPIUM BROMIDE [Concomitant]
     Indication: EMPHYSEMA
     Dates: start: 20111019, end: 20120501
  6. LANSOPRAZOLE [Concomitant]
     Indication: GASTROOESOPHAGEAL REFLUX DISEASE
     Dosage: 15 MILLIGRAM DAILY;
     Dates: start: 20111212, end: 20120501

REACTIONS (3)
  - Pulmonary tuberculosis [Recovering/Resolving]
  - Pneumocystis jirovecii pneumonia [Recovering/Resolving]
  - Cytomegalovirus infection [Recovered/Resolved]
